FAERS Safety Report 25025791 (Version 1)
Quarter: 2025Q1

REPORT INFORMATION
  Report Type: Spontaneous
  Country: US (occurrence: US)
  Receive Date: 20250301
  Receipt Date: 20250301
  Transmission Date: 20250409
  Serious: No
  Sender: NOVO NORDISK
  Company Number: US-NOVOPROD-1249203

PATIENT
  Sex: Female

DRUGS (1)
  1. VICTOZA [Suspect]
     Active Substance: LIRAGLUTIDE
     Indication: Product used for unknown indication
     Route: 058

REACTIONS (5)
  - Weight increased [Unknown]
  - Non-pitting oedema [Unknown]
  - Peripheral swelling [Unknown]
  - Blood potassium decreased [Unknown]
  - Blood urine present [Unknown]
